FAERS Safety Report 19518734 (Version 1)
Quarter: 2021Q3

REPORT INFORMATION
  Report Type: Spontaneous
  Country: GB (occurrence: GB)
  Receive Date: 20210710
  Receipt Date: 20210710
  Transmission Date: 20211014
  Serious: Yes (Other)
  Sender: FDA-Public Use
  Company Number: None

PATIENT
  Age: 32 Year
  Sex: Male
  Weight: 74.25 kg

DRUGS (1)
  1. KIRKLAND SIGNATURE ALLER TEC ALLERGY [Suspect]
     Active Substance: CETIRIZINE HYDROCHLORIDE
     Indication: MECHANICAL URTICARIA
     Dosage: ?          QUANTITY:1 TABLET(S);?
     Route: 048
     Dates: start: 20210706, end: 20210708

REACTIONS (9)
  - Dizziness [None]
  - Withdrawal syndrome [None]
  - Somnolence [None]
  - Overdose [None]
  - Impaired work ability [None]
  - Impaired driving ability [None]
  - Headache [None]
  - Disturbance in attention [None]
  - Product quality issue [None]

NARRATIVE: CASE EVENT DATE: 20210706
